FAERS Safety Report 14987536 (Version 1)
Quarter: 2018Q2

REPORT INFORMATION
  Report Type: Report from Study
  Country: JP (occurrence: JP)
  Receive Date: 20180608
  Receipt Date: 20180608
  Transmission Date: 20180711
  Serious: Yes (Other)
  Sender: FDA-Public Use
  Company Number: JP-ROCHE-2103093

PATIENT
  Age: 63 Year
  Sex: Male
  Weight: 59 kg

DRUGS (45)
  1. TACROLIMUS HYDRATE [Suspect]
     Active Substance: TACROLIMUS
     Dosage: 7.5NG/ML
     Route: 048
     Dates: start: 20170929
  2. TACROLIMUS HYDRATE [Suspect]
     Active Substance: TACROLIMUS
     Dosage: 10.7-13.4NG/ML
     Route: 048
     Dates: start: 20171204, end: 20171205
  3. TACROLIMUS HYDRATE [Suspect]
     Active Substance: TACROLIMUS
     Dosage: 9.0NG/ML
     Route: 048
     Dates: start: 20180119
  4. METHYLPREDNISOLONE. [Suspect]
     Active Substance: METHYLPREDNISOLONE
     Route: 048
     Dates: start: 20170909, end: 20170911
  5. METHYLPREDNISOLONE. [Suspect]
     Active Substance: METHYLPREDNISOLONE
     Route: 048
     Dates: start: 20170915, end: 20170917
  6. METHYLPREDNISOLONE. [Suspect]
     Active Substance: METHYLPREDNISOLONE
     Route: 048
     Dates: start: 20171020
  7. CELESTAMINE (FRANCE) [Concomitant]
     Indication: PREMEDICATION
     Route: 048
     Dates: start: 20170821, end: 20170821
  8. TACROLIMUS HYDRATE [Suspect]
     Active Substance: TACROLIMUS
     Indication: RENAL TRANSPLANT
     Dosage: 10.6-13.9NG/ML
     Route: 048
     Dates: start: 20170902
  9. TACROLIMUS HYDRATE [Suspect]
     Active Substance: TACROLIMUS
     Dosage: 18.7 NG/ML
     Route: 048
     Dates: start: 20170906
  10. METHYLPREDNISOLONE. [Suspect]
     Active Substance: METHYLPREDNISOLONE
     Route: 048
     Dates: start: 20170918, end: 20170920
  11. EQUA [Concomitant]
     Active Substance: VILDAGLIPTIN
     Indication: DIABETIC NEPHROPATHY
     Route: 048
  12. LASIX [Concomitant]
     Active Substance: FUROSEMIDE
     Indication: DIABETIC NEPHROPATHY
     Route: 048
     Dates: start: 20170904
  13. TACROLIMUS HYDRATE [Suspect]
     Active Substance: TACROLIMUS
     Dosage: 18.7NG/ML
     Route: 048
     Dates: start: 20170904, end: 20170905
  14. VALGANCICLOVIR HYDROCHLORIDE. [Suspect]
     Active Substance: VALGANCICLOVIR HYDROCHLORIDE
     Indication: CYTOMEGALOVIRUS VIRAEMIA
     Route: 065
  15. BASILIXIMAB [Concomitant]
     Active Substance: BASILIXIMAB
     Route: 042
     Dates: start: 20170909, end: 20170909
  16. MYCOPHENOLATE MOFETIL. [Suspect]
     Active Substance: MYCOPHENOLATE MOFETIL
     Indication: PRODUCT USED FOR UNKNOWN INDICATION
     Route: 048
     Dates: start: 20170829, end: 20170904
  17. MYCOPHENOLATE MOFETIL. [Suspect]
     Active Substance: MYCOPHENOLATE MOFETIL
     Route: 048
     Dates: start: 20170906
  18. TACROLIMUS HYDRATE [Suspect]
     Active Substance: TACROLIMUS
     Dosage: 7.2-11.0NG/ML
     Route: 048
     Dates: start: 20170912, end: 20170915
  19. TACROLIMUS HYDRATE [Suspect]
     Active Substance: TACROLIMUS
     Dosage: 10.7NG/ML
     Route: 048
     Dates: start: 20171013
  20. TACROLIMUS HYDRATE [Suspect]
     Active Substance: TACROLIMUS
     Dosage: 19.8NG/ML
     Route: 048
     Dates: start: 20171113
  21. ALOSITOL [Concomitant]
     Active Substance: ALLOPURINOL
     Indication: DIABETIC NEPHROPATHY
     Route: 048
  22. TACROLIMUS HYDRATE [Suspect]
     Active Substance: TACROLIMUS
     Dosage: 8.0NG/ML
     Route: 048
     Dates: start: 20171027
  23. TACROLIMUS HYDRATE [Suspect]
     Active Substance: TACROLIMUS
     Dosage: 11.3NG/ML
     Route: 048
     Dates: start: 20171120
  24. TACROLIMUS HYDRATE [Suspect]
     Active Substance: TACROLIMUS
     Dosage: 5.4NG/ML
     Route: 048
     Dates: start: 20180202
  25. TACROLIMUS HYDRATE [Suspect]
     Active Substance: TACROLIMUS
     Dosage: 3.1NG/ML
     Route: 048
     Dates: start: 20180223
  26. METHYLPREDNISOLONE. [Suspect]
     Active Substance: METHYLPREDNISOLONE
     Route: 048
     Dates: start: 20170912, end: 20170914
  27. D-CHLORPHENIRAMINE MALEATE [Concomitant]
     Active Substance: DEXCHLORPHENIRAMINE MALEATE
     Dosage: 2 TABLETS
     Route: 048
  28. PROTECADIN [Concomitant]
     Active Substance: LAFUTIDINE
     Route: 048
     Dates: start: 20170907
  29. TACROLIMUS HYDRATE [Suspect]
     Active Substance: TACROLIMUS
     Dosage: 9.1NG/ML
     Route: 048
     Dates: start: 20170917
  30. TACROLIMUS HYDRATE [Suspect]
     Active Substance: TACROLIMUS
     Dosage: 7.6NG/ML
     Route: 048
     Dates: start: 20170919
  31. TACROLIMUS HYDRATE [Suspect]
     Active Substance: TACROLIMUS
     Dosage: 8.8NG/ML
     Route: 048
     Dates: start: 20170922
  32. TACROLIMUS HYDRATE [Suspect]
     Active Substance: TACROLIMUS
     Dosage: 4.0NG/ML
     Route: 048
     Dates: start: 20180209
  33. METHYLPREDNISOLONE. [Suspect]
     Active Substance: METHYLPREDNISOLONE
     Route: 048
     Dates: start: 20170921, end: 20170927
  34. BASILIXIMAB [Concomitant]
     Active Substance: BASILIXIMAB
     Route: 042
     Dates: start: 20170905, end: 20170905
  35. ARTIST [Concomitant]
     Active Substance: CARVEDILOL
     Indication: HYPERTENSION
     Route: 048
  36. CILOSTAZOL. [Concomitant]
     Active Substance: CILOSTAZOL
     Indication: THROMBOSIS PROPHYLAXIS
     Route: 048
     Dates: start: 20170907
  37. RITUXIMAB. [Suspect]
     Active Substance: RITUXIMAB
     Indication: RENAL TRANSPLANT
     Route: 041
     Dates: start: 20170821, end: 20170821
  38. TACROLIMUS HYDRATE [Suspect]
     Active Substance: TACROLIMUS
     Dosage: 10.4-13.0NG/ML
     Route: 048
     Dates: start: 20170907, end: 20170908
  39. TACROLIMUS HYDRATE [Suspect]
     Active Substance: TACROLIMUS
     Dosage: 15.4-?18.9NG/ML
     Route: 048
     Dates: start: 20170909, end: 20170911
  40. TACROLIMUS HYDRATE [Suspect]
     Active Substance: TACROLIMUS
     Dosage: 8.0NG/ML
     Route: 048
     Dates: start: 20171225
  41. METHYLPREDNISOLONE SODIUM SUCCINATE. [Suspect]
     Active Substance: METHYLPREDNISOLONE SODIUM SUCCINATE
     Indication: RENAL TRANSPLANT
     Route: 042
     Dates: start: 20170906, end: 20170908
  42. METHYLPREDNISOLONE. [Suspect]
     Active Substance: METHYLPREDNISOLONE
     Indication: RENAL TRANSPLANT
     Route: 048
     Dates: start: 20170902, end: 20170904
  43. METHYLPREDNISOLONE. [Suspect]
     Active Substance: METHYLPREDNISOLONE
     Route: 048
     Dates: start: 20170928, end: 20171019
  44. BETAMETHASONE. [Concomitant]
     Active Substance: BETAMETHASONE
  45. FOSRENOL [Concomitant]
     Active Substance: LANTHANUM CARBONATE
     Indication: HYPERPHOSPHATAEMIA
     Route: 048
     Dates: start: 20170904

REACTIONS (2)
  - Cytomegalovirus viraemia [Recovered/Resolved]
  - Neutrophil count decreased [Recovered/Resolved]

NARRATIVE: CASE EVENT DATE: 20171027
